FAERS Safety Report 25925518 (Version 1)
Quarter: 2025Q4

REPORT INFORMATION
  Report Type: Spontaneous
  Country: US (occurrence: None)
  Receive Date: 20251014
  Receipt Date: 20251014
  Transmission Date: 20260118
  Serious: Yes (Hospitalization)
  Sender: FDA-CTU
  Company Number: None

PATIENT
  Sex: Male

DRUGS (2)
  1. AVASTIN [Suspect]
     Active Substance: BEVACIZUMAB
     Indication: Hepatocellular carcinoma
     Dosage: OTHER FREQUENCY : DAY 1 OF A 21 DAY CYCLE;?
     Route: 042
     Dates: start: 20250207
  2. TECENTRIQ [Concomitant]
     Active Substance: ATEZOLIZUMAB

REACTIONS (1)
  - Hospitalisation [None]
